FAERS Safety Report 10585975 (Version 1)
Quarter: 2014Q4

REPORT INFORMATION
  Report Type: Spontaneous
  Country: CA (occurrence: CA)
  Receive Date: 20141114
  Receipt Date: 20141114
  Transmission Date: 20150529
  Serious: Yes (Hospitalization)
  Sender: FDA-Public Use
  Company Number: CA-ASTRAZENECA-2014SE84957

PATIENT
  Age: 59 Year
  Sex: Male
  Weight: 90 kg

DRUGS (9)
  1. ATORVASTATIN CALCIUM. [Concomitant]
     Active Substance: ATORVASTATIN CALCIUM
  2. METOPROLOL [Concomitant]
     Active Substance: METOPROLOL
  3. BRILINTA [Suspect]
     Active Substance: TICAGRELOR
     Route: 048
  4. ENOXAPARIN [Interacting]
     Active Substance: ENOXAPARIN
     Route: 058
  5. CLOPIDOGREL [Interacting]
     Active Substance: CLOPIDOGREL BISULFATE
     Route: 048
  6. METFORMIN [Concomitant]
     Active Substance: METFORMIN HYDROCHLORIDE
  7. ASPIRIN. [Interacting]
     Active Substance: ASPIRIN
     Route: 048
  8. HYDROCHLOROTHIAZIDE. [Concomitant]
     Active Substance: HYDROCHLOROTHIAZIDE
  9. PERINDOPRIL [Concomitant]
     Active Substance: PERINDOPRIL

REACTIONS (5)
  - Haematocrit decreased [Unknown]
  - Haematemesis [Unknown]
  - Drug interaction [Unknown]
  - Haemoglobin decreased [Unknown]
  - Gastrointestinal ulcer [Unknown]
